FAERS Safety Report 7522183-7 (Version None)
Quarter: 2011Q2

REPORT INFORMATION
  Report Type: 
  Country: None (occurrence: None)
  Receive Date: 20110523
  Receipt Date: 20110511
  Transmission Date: 20111010
  Serious: Yes (Death, Hospitalization, Disabling, Other)
  Sender: FDA-Public Use
  Company Number: 2011PROUSA00221

PATIENT
  Age: 86 Year
  Sex: Male
  Weight: 72.6 kg

DRUGS (9)
  1. PLAVIX [Concomitant]
  2. MICARDIS [Concomitant]
  3. PROVENGE [Suspect]
     Indication: PROSTATE CANCER METASTATIC
     Dosage: 250 ML, SINGLE, INTRAVENOUS
     Route: 042
     Dates: start: 20110113, end: 20110113
  4. PROVENGE [Suspect]
     Indication: PROSTATE CANCER METASTATIC
     Dosage: 250 ML, SINGLE, INTRAVENOUS
     Route: 042
     Dates: start: 20110127, end: 20110127
  5. PROVENGE [Suspect]
  6. AVODART [Concomitant]
  7. ERGOCALCIFEROL [Concomitant]
  8. CRESTOR [Concomitant]
  9. DOXYCYCLINE [Concomitant]

REACTIONS (16)
  - NO THERAPEUTIC RESPONSE [None]
  - DIET REFUSAL [None]
  - BLOOD CULTURE POSITIVE [None]
  - DRUG INEFFECTIVE [None]
  - PAIN [None]
  - PROSTATE CANCER STAGE IV [None]
  - ASTHENIA [None]
  - HYPONATRAEMIA [None]
  - KIDNEY INFECTION [None]
  - EJECTION FRACTION DECREASED [None]
  - CARDIAC FAILURE CONGESTIVE [None]
  - DEHYDRATION [None]
  - URINARY TRACT INFECTION [None]
  - MALNUTRITION [None]
  - DEVICE RELATED INFECTION [None]
  - PRODUCT STERILITY LACKING [None]
